FAERS Safety Report 21795702 (Version 2)
Quarter: 2023Q1

REPORT INFORMATION
  Report Type: Report from Study
  Country: AU (occurrence: AU)
  Receive Date: 20221229
  Receipt Date: 20230106
  Transmission Date: 20230417
  Serious: Yes (Hospitalization)
  Sender: FDA-Public Use
  Company Number: AU-Merck Healthcare KGaA-9373921

PATIENT
  Age: 80 Year
  Sex: Male
  Weight: 60 kg

DRUGS (10)
  1. AVELUMAB [Suspect]
     Active Substance: AVELUMAB
     Indication: Oesophageal carcinoma
     Dosage: 640 MG
     Route: 042
     Dates: start: 20221026
  2. AVELUMAB [Suspect]
     Active Substance: AVELUMAB
     Dosage: UNK
     Dates: start: 20221207
  3. CARBOPLATIN [Suspect]
     Active Substance: CARBOPLATIN
     Indication: Oesophageal carcinoma
     Dosage: 198 MG
     Route: 042
     Dates: start: 20221026
  4. CARBOPLATIN [Suspect]
     Active Substance: CARBOPLATIN
     Dosage: 198 MG
     Route: 042
     Dates: start: 20221123
  5. PACLITAXEL [Suspect]
     Active Substance: PACLITAXEL
     Indication: Oesophageal carcinoma
     Dosage: 87 MG
     Route: 042
     Dates: start: 20221026
  6. PACLITAXEL [Suspect]
     Active Substance: PACLITAXEL
     Dosage: 87 MG
     Route: 042
     Dates: start: 20221123
  7. CITALOPRAM [Concomitant]
     Active Substance: CITALOPRAM HYDROBROMIDE
     Indication: Anxiety
     Dosage: 20 MG, 1X/DAY
     Route: 048
     Dates: start: 2022
  8. ROSUVASTATIN [Concomitant]
     Active Substance: ROSUVASTATIN
     Indication: Hypercholesterolaemia
     Dosage: 20 MG, NOCTE
     Route: 048
     Dates: start: 2022
  9. DIAZEPAM [Concomitant]
     Active Substance: DIAZEPAM
     Indication: Anxiety
     Dosage: 2 MG, AS NEEDED (TDS PRN)
     Route: 048
     Dates: start: 2022
  10. ONDANSETRON [Concomitant]
     Active Substance: ONDANSETRON
     Indication: Prophylaxis of nausea and vomiting
     Dosage: 1 TABLET, AS NEEDED (PRN)
     Route: 048
     Dates: start: 2022

REACTIONS (3)
  - Nausea [Recovered/Resolved]
  - Vomiting [Recovered/Resolved]
  - Abdominal pain [Recovered/Resolved]

NARRATIVE: CASE EVENT DATE: 20221218
